FAERS Safety Report 4924260-3 (Version None)
Quarter: 2006Q1

REPORT INFORMATION
  Report Type: 
  Country: None (occurrence: None)
  Receive Date: 20060221
  Receipt Date: 20060208
  Transmission Date: 20060701
  Serious: Yes (Disabling, Other)
  Sender: FDA-Public Use
  Company Number: 2006020261

PATIENT
  Age: 59 Year
  Sex: Male
  Weight: 90.7194 kg

DRUGS (4)
  1. LIPITOR [Suspect]
     Indication: BLOOD CHOLESTEROL INCREASED
     Dosage: 20 MG (20 MG, 1 IN 1 D), UNKNOWN
  2. ACCOLATE [Concomitant]
  3. NORTRIPTYLINE (NORTRIPTYLINE) [Concomitant]
  4. DILTIAZEM [Concomitant]

REACTIONS (2)
  - ARTHROPATHY [None]
  - JOINT SPRAIN [None]
